FAERS Safety Report 22176307 (Version 1)
Quarter: 2023Q2

REPORT INFORMATION
  Report Type: Spontaneous
  Country: US (occurrence: None)
  Receive Date: 20230404
  Receipt Date: 20230404
  Transmission Date: 20230721
  Serious: Yes (Hospitalization)
  Sender: FDA-Public Use
  Company Number: None

PATIENT
  Age: 67 Year
  Sex: Female
  Weight: 80.1 kg

DRUGS (9)
  1. CITROMA [Suspect]
     Active Substance: MAGNESIUM CITRATE
     Indication: Infrequent bowel movements
     Dosage: 10 OUNCES AS NEEDED ORAL
     Route: 048
  2. ATORVASTATIN [Concomitant]
     Active Substance: ATORVASTATIN
  3. CARVEDILOL [Concomitant]
     Active Substance: CARVEDILOL
  4. CEFPROZIL [Concomitant]
     Active Substance: CEFPROZIL
  5. FUROSEMIDE [Concomitant]
     Active Substance: FUROSEMIDE
  6. LORAZEPAM [Concomitant]
     Active Substance: LORAZEPAM
  7. METFORMIN [Concomitant]
     Active Substance: METFORMIN HYDROCHLORIDE
  8. Multivitamin 50 Plus [Concomitant]
  9. minerals-lutein potassium chloride [Concomitant]

REACTIONS (1)
  - Gastrointestinal haemorrhage [None]

NARRATIVE: CASE EVENT DATE: 20220924
